FAERS Safety Report 7908962-2 (Version None)
Quarter: 2011Q4

REPORT INFORMATION
  Report Type: 
  Country: None (occurrence: None)
  Receive Date: 20111111
  Receipt Date: 20111104
  Transmission Date: 20120403
  Serious: Yes (Hospitalization)
  Sender: FDA-Public Use
  Company Number: FR-UCBSA-045132

PATIENT
  Age: 51 Year
  Sex: Male

DRUGS (9)
  1. URBANYL [Concomitant]
     Dosage: 5 MG
  2. TRILEPTAL [Concomitant]
  3. ACETAMINOPHEN [Concomitant]
  4. DEPAKENE [Concomitant]
     Dosage: 500 MG
  5. DOMPERIDONE [Concomitant]
  6. VIMPAT [Suspect]
     Route: 048
     Dates: end: 20111024
  7. DIHYDROERGOTAMINE MESYLATE [Concomitant]
     Dosage: 5 MG
  8. PAROXETINE HCL [Concomitant]
     Dosage: 20 MG
  9. LOPERAMIDE HCL [Concomitant]
     Dosage: 2 MG

REACTIONS (4)
  - HYPOTENSION [None]
  - SINUS BRADYCARDIA [None]
  - DEHYDRATION [None]
  - FALL [None]
